FAERS Safety Report 8295367-0 (Version None)
Quarter: 2012Q2

REPORT INFORMATION
  Report Type: 
  Country: None (occurrence: None)
  Receive Date: 20120418
  Receipt Date: 20120319
  Transmission Date: 20120825
  Serious: Yes (Other)
  Sender: FDA-Public Use
  Company Number: NO-BAXTER-2012BAX000006

PATIENT
  Sex: Female

DRUGS (1)
  1. KIOVIG [Suspect]
     Dosage: 20 G/DAY
     Route: 065

REACTIONS (2)
  - HEPATITIS B SURFACE ANTIBODY POSITIVE [None]
  - HEPATITIS B CORE ANTIBODY POSITIVE [None]
